FAERS Safety Report 7496229-9 (Version None)
Quarter: 2011Q2

REPORT INFORMATION
  Report Type: 
  Country: None (occurrence: None)
  Receive Date: 20110523
  Receipt Date: 20110513
  Transmission Date: 20111010
  Serious: Yes (Hospitalization, Other)
  Sender: FDA-Public Use
  Company Number: PHFR2010GB03440

PATIENT
  Sex: Male

DRUGS (11)
  1. PREDNISOLONE [Concomitant]
  2. SULFASALAZINE [Concomitant]
  3. CITALOPRAM [Concomitant]
  4. OMEPRAZOLE [Concomitant]
  5. CLOZARIL [Suspect]
     Indication: SCHIZOPHRENIA
     Dosage: 150 MG AM, 500 MG PM
     Route: 048
     Dates: start: 20010305
  6. MULTI-VITAMINS [Concomitant]
  7. DICLOFENAC SODIUM [Concomitant]
  8. ADCAL-D3 [Concomitant]
  9. VALPROATE SODIUM [Concomitant]
  10. ALENDRONIC ACID [Concomitant]
  11. SIMVASTATIN [Concomitant]

REACTIONS (6)
  - EOSINOPHILIA [None]
  - ARTHRITIS [None]
  - BLOOD CHOLESTEROL INCREASED [None]
  - WOUND INFECTION [None]
  - EOSINOPHIL COUNT INCREASED [None]
  - DIABETES MELLITUS [None]
